FAERS Safety Report 15931756 (Version 1)
Quarter: 2019Q1

REPORT INFORMATION
  Report Type: Spontaneous
  Country: US (occurrence: US)
  Receive Date: 20190207
  Receipt Date: 20190207
  Transmission Date: 20190417
  Serious: Yes (Hospitalization, Other)
  Sender: FDA-Public Use
  Company Number: US-BAYER-2019-025665

PATIENT
  Age: 29 Year
  Sex: Female

DRUGS (13)
  1. VANCOMYCIN [Suspect]
     Active Substance: VANCOMYCIN
     Indication: CLOSTRIDIUM DIFFICILE COLITIS
     Dosage: UNK
     Route: 048
     Dates: start: 201606, end: 201606
  2. CLINDAMYCIN. [Suspect]
     Active Substance: CLINDAMYCIN
     Indication: CHRONIC TONSILLITIS
     Dosage: 1 DF, UNK
     Dates: start: 201509
  3. CIPRO [Suspect]
     Active Substance: CIPROFLOXACIN HYDROCHLORIDE
     Indication: PERIRECTAL ABSCESS
     Dosage: UNK
     Dates: start: 201604, end: 201604
  4. CLINDAMYCIN. [Suspect]
     Active Substance: CLINDAMYCIN
     Indication: CHRONIC TONSILLITIS
     Dosage: UNK
     Dates: start: 201511
  5. METRONIDAZOLE. [Suspect]
     Active Substance: METRONIDAZOLE
     Indication: PERIRECTAL ABSCESS
     Dosage: UNK
     Dates: start: 201509, end: 201509
  6. CLINDAMYCIN. [Suspect]
     Active Substance: CLINDAMYCIN
     Indication: CHRONIC TONSILLITIS
     Dosage: UNK
     Dates: start: 201602
  7. METRONIDAZOLE. [Suspect]
     Active Substance: METRONIDAZOLE
     Indication: PERIRECTAL ABSCESS
     Dosage: UNK
     Route: 048
     Dates: start: 201603
  8. CIPRO [Suspect]
     Active Substance: CIPROFLOXACIN HYDROCHLORIDE
     Indication: PERIRECTAL ABSCESS
     Dosage: UNK
     Route: 048
     Dates: start: 201508
  9. METRONIDAZOLE. [Suspect]
     Active Substance: METRONIDAZOLE
     Indication: PERIRECTAL ABSCESS
     Dosage: UNK
     Route: 042
     Dates: start: 201606
  10. CIPRO [Suspect]
     Active Substance: CIPROFLOXACIN HYDROCHLORIDE
     Indication: PERIRECTAL ABSCESS
     Dosage: UNK
     Dates: start: 201512, end: 201601
  11. METRONIDAZOLE. [Suspect]
     Active Substance: METRONIDAZOLE
     Indication: BACTERIAL VAGINOSIS
     Dosage: MULTIPLE COURSES
     Dates: start: 201512, end: 201601
  12. CIPRO [Suspect]
     Active Substance: CIPROFLOXACIN HYDROCHLORIDE
     Indication: DYSURIA
     Dosage: UNK
     Dates: start: 201509
  13. VANCOMYCIN [Suspect]
     Active Substance: VANCOMYCIN
     Indication: CLOSTRIDIUM DIFFICILE COLITIS
     Dosage: UNK
     Route: 048
     Dates: start: 2016

REACTIONS (1)
  - Clostridium difficile colitis [Recovered/Resolved]

NARRATIVE: CASE EVENT DATE: 201606
